FAERS Safety Report 5089070-8 (Version None)
Quarter: 2006Q3

REPORT INFORMATION
  Report Type: 
  Country: None (occurrence: None)
  Receive Date: 20060822
  Receipt Date: 20060801
  Transmission Date: 20061208
  Serious: Yes (Other)
  Sender: FDA-Public Use
  Company Number: DE200608000575

PATIENT
  Age: 65 Year
  Sex: Female
  Weight: 623 kg

DRUGS (7)
  1. FORTEO [Suspect]
     Indication: OSTEOPOROSIS
     Dosage: UNK, DAILY (1/D), SUBCUTANEOUS
     Route: 058
     Dates: start: 20051215, end: 20060508
  2. FORTEO PEN (FORTEO PEN) [Concomitant]
  3. CALCIUM (CALCIUM) [Concomitant]
  4. ISOPTIN [Concomitant]
  5. THYROXIN (LEVOTHYROXINE SODIUM) [Concomitant]
  6. ATORVASTATIN CALCIUM [Concomitant]
  7. ACTIVELLE [Concomitant]

REACTIONS (2)
  - PALPITATIONS [None]
  - SUPRAVENTRICULAR TACHYCARDIA [None]
